FAERS Safety Report 4841861-1 (Version None)
Quarter: 2005Q4

REPORT INFORMATION
  Report Type: 
  Country: None (occurrence: None)
  Receive Date: 20051130
  Receipt Date: 20050916
  Transmission Date: 20060501
  Serious: No
  Sender: FDA-Public Use
  Company Number: US-GLAXOSMITHKLINE-A0574699A

PATIENT
  Sex: Female

DRUGS (2)
  1. WELLBUTRIN XL [Suspect]
     Indication: PANIC ATTACK
     Dosage: 300MG PER DAY
     Route: 048
  2. NATURAL MEDICATION [Suspect]
     Indication: PANIC ATTACK
     Route: 065

REACTIONS (3)
  - DRUG INTERACTION [None]
  - DYSPHEMIA [None]
  - SPEECH DISORDER [None]
